FAERS Safety Report 9734442 (Version 3)
Quarter: 2014Q1

REPORT INFORMATION
  Report Type: Spontaneous
  Country: US (occurrence: US)
  Receive Date: 20131206
  Receipt Date: 20140312
  Transmission Date: 20141002
  Serious: Yes (Hospitalization, Other)
  Sender: FDA-Public Use
  Company Number: US-BEH-2012031620

PATIENT
  Age: 60 Year
  Sex: Female
  Weight: 40 kg

DRUGS (24)
  1. HIZENTRA [Suspect]
     Indication: IMMUNODEFICIENCY COMMON VARIABLE
     Dosage: 10 G (50 ML)  WEEKLY VIA FOUR SITES OVER 1-2 HOURS
     Route: 058
     Dates: start: 20110225
  2. HIZENTRA [Suspect]
     Dates: start: 20120312
  3. HIZENTRA [Suspect]
     Dates: start: 20120312
  4. HIZENTRA [Suspect]
     Dosage: 4 SITES OVER 1-2 HOURS
     Route: 058
  5. HIZENTRA [Suspect]
     Dosage: 4 SITES OVER 1-2 HOURS
     Route: 058
  6. HIZENTRA [Suspect]
     Route: 058
  7. HIZENTRA [Suspect]
     Route: 058
  8. PREDNISONE [Concomitant]
  9. LORATADINE [Concomitant]
  10. PROCHLORPERAZINE [Concomitant]
  11. MECLIZINE [Concomitant]
  12. TOPAMAX [Concomitant]
  13. PROMETHAZINE [Concomitant]
  14. ATENOLOL [Concomitant]
  15. AMITRIPTYLINE [Concomitant]
  16. OMEPRAZOLE [Concomitant]
  17. HYDROCHLOROTHIAZIDE [Concomitant]
  18. DILTIAZEM [Concomitant]
  19. FUROSEMIDE [Concomitant]
  20. KLOR-CON [Concomitant]
  21. DIAZEPAM [Concomitant]
  22. CYCLOBENZAPRINE [Concomitant]
  23. LIDOCAINE/PRILOCAINE [Concomitant]
  24. EPI PEN [Concomitant]

REACTIONS (5)
  - Atypical pneumonia [Unknown]
  - Infusion site pain [Unknown]
  - Investigation [Unknown]
  - Cognitive disorder [Unknown]
  - Skin mass [Unknown]
